FAERS Safety Report 8177095-5 (Version None)
Quarter: 2012Q1

REPORT INFORMATION
  Report Type: 
  Country: None (occurrence: None)
  Receive Date: 20120301
  Receipt Date: 20120222
  Transmission Date: 20120608
  Serious: Yes (Other)
  Sender: FDA-Public Use
  Company Number: US-GLAXOSMITHKLINE-A0952192A

PATIENT
  Age: 22 Year
  Sex: Female
  Weight: 51.8 kg

DRUGS (6)
  1. FOLIC ACID [Concomitant]
     Dosage: 1MG PER DAY
  2. KEPPRA XR [Concomitant]
  3. VITAMIN D [Concomitant]
     Dosage: 1000IU PER DAY
  4. CALCIUM [Concomitant]
     Dosage: 1200MG PER DAY
  5. TRI-SPRINTEC [Concomitant]
  6. LAMICTAL [Suspect]
     Indication: EPILEPSY
     Dosage: 400MG IN THE MORNING
     Route: 048
     Dates: start: 20110715

REACTIONS (8)
  - LOSS OF CONSCIOUSNESS [None]
  - MEMORY IMPAIRMENT [None]
  - VOMITING [None]
  - POSTICTAL STATE [None]
  - PRODUCT QUALITY ISSUE [None]
  - CONVULSION [None]
  - GASTROENTERITIS VIRAL [None]
  - DISORIENTATION [None]
